FAERS Safety Report 4473354-8 (Version None)
Quarter: 2004Q4

REPORT INFORMATION
  Report Type: 
  Country: None (occurrence: None)
  Receive Date: 20041008
  Receipt Date: 20040813
  Transmission Date: 20050328
  Serious: Yes (Other)
  Sender: FDA-Public Use
  Company Number: ENTC2004-0156

PATIENT
  Age: 46 Year
  Sex: Male

DRUGS (8)
  1. STALEVO 100 [Suspect]
     Indication: PARKINSON'S DISEASE
     Dates: start: 20040101
  2. PARKOTIL [Concomitant]
  3. AMANTADINE HCL [Concomitant]
  4. KEPPRA [Concomitant]
  5. PHENYTOIN [Concomitant]
  6. LEVETIRACETAM [Concomitant]
  7. CARBIDOPA AND LEVODOPA [Concomitant]
  8. COMTESS (ENTACAPONE) [Concomitant]

REACTIONS (6)
  - ASTHENIA [None]
  - CONDITION AGGRAVATED [None]
  - MOVEMENT DISORDER [None]
  - PARKINSON'S DISEASE [None]
  - SPEECH DISORDER [None]
  - UNEXPECTED THERAPEUTIC DRUG EFFECT [None]
